FAERS Safety Report 8101660-4 (Version None)
Quarter: 2012Q1

REPORT INFORMATION
  Report Type: 
  Country: None (occurrence: None)
  Receive Date: 20120129
  Receipt Date: 20111012
  Transmission Date: 20120608
  Serious: No
  Sender: FDA-Public Use
  Company Number: US-ABBOTT-11P-163-0863370-00

PATIENT
  Sex: Female

DRUGS (6)
  1. PROPRANOLOL [Concomitant]
     Indication: HYPERTENSION
  2. PRAVASTATIN [Concomitant]
     Indication: BLOOD CHOLESTEROL INCREASED
  3. METFORMIN HCL [Concomitant]
     Indication: DIABETES MELLITUS
  4. HUMIRA [Suspect]
     Indication: PSORIASIS
     Route: 058
     Dates: start: 20110916
  5. AMITRIPTYLINE HCL [Concomitant]
     Indication: INSOMNIA
     Dosage: ONE AT NIGHT
  6. ASPIRIN [Concomitant]
     Indication: PRODUCT USED FOR UNKNOWN INDICATION

REACTIONS (6)
  - NASAL CONGESTION [None]
  - SINUS HEADACHE [None]
  - FATIGUE [None]
  - SINUSITIS [None]
  - THROAT IRRITATION [None]
  - HEADACHE [None]
